FAERS Safety Report 5879827-5 (Version None)
Quarter: 2008Q3

REPORT INFORMATION
  Report Type: 
  Country: None (occurrence: None)
  Receive Date: 20080912
  Receipt Date: 20080908
  Transmission Date: 20090109
  Serious: Yes (Other)
  Sender: FDA-Public Use
  Company Number: US-ALLERGAN-0811226US

PATIENT
  Sex: Female

DRUGS (3)
  1. COMBIGAN [Suspect]
     Indication: GLAUCOMA
     Dosage: UNK, QAM
     Route: 047
     Dates: end: 20080801
  2. COMBIGAN [Suspect]
     Dosage: UNK, BID
     Route: 047
     Dates: start: 20080501
  3. TIMOLOL [Concomitant]
     Indication: GLAUCOMA
     Route: 047

REACTIONS (7)
  - DRUG HYPERSENSITIVITY [None]
  - EYE DISCHARGE [None]
  - EYE PRURITUS [None]
  - EYE SWELLING [None]
  - INFECTION [None]
  - OCULAR HYPERAEMIA [None]
  - VISUAL ACUITY REDUCED [None]
